FAERS Safety Report 5696947-9 (Version None)
Quarter: 2008Q2

REPORT INFORMATION
  Report Type: 
  Country: None (occurrence: None)
  Receive Date: 20080408
  Receipt Date: 20080404
  Transmission Date: 20081010
  Serious: Yes (Other)
  Sender: FDA-Public Use
  Company Number: GB-WYE-G01353608

PATIENT
  Sex: Male

DRUGS (2)
  1. TORISEL [Suspect]
     Dosage: UNKNOWN
  2. PHENYTOIN [Concomitant]
     Dosage: UNKNOWN

REACTIONS (3)
  - HALLUCINATION [None]
  - NEUROLOGICAL SYMPTOM [None]
  - PSYCHOMOTOR HYPERACTIVITY [None]
